FAERS Safety Report 7874902-8 (Version None)
Quarter: 2011Q4

REPORT INFORMATION
  Report Type: 
  Country: None (occurrence: None)
  Receive Date: 20111014
  Receipt Date: 20110113
  Transmission Date: 20120403
  Serious: Yes (Other)
  Sender: FDA-Public Use
  Company Number: 1000018159

PATIENT
  Age: 31 Year
  Sex: Female

DRUGS (4)
  1. LEXAPRO [Suspect]
     Indication: DEPRESSION
     Dosage: 10 MG (10 MG,1 IN 1 D),ORAL
     Route: 048
     Dates: start: 20101101, end: 20110106
  2. LEXAPRO [Suspect]
     Indication: ANXIETY
     Dosage: 10 MG (10 MG,1 IN 1 D),ORAL
     Route: 048
     Dates: start: 20101101, end: 20110106
  3. TRAMADOL (TRAMADOL) (50 MILLIGRAM, TABLETS) (TRAMADOL) [Concomitant]
  4. ALPRAZOLAM (ALPRAZOLAM) (1 MILLIGRAM, TABLETS) (ALPRAZOLAM) [Concomitant]

REACTIONS (5)
  - CRYING [None]
  - SUICIDAL IDEATION [None]
  - DEPRESSION [None]
  - MOOD SWINGS [None]
  - PARANOIA [None]
